FAERS Safety Report 17217556 (Version 3)
Quarter: 2020Q1

REPORT INFORMATION
  Report Type: Report from Study
  Country: CN (occurrence: CN)
  Receive Date: 20191231
  Receipt Date: 20200302
  Transmission Date: 20200409
  Serious: Yes (Other)
  Sender: FDA-Public Use
  Company Number: CN-BRISTOL-MYERS SQUIBB COMPANY-BMS-2019-106864

PATIENT
  Age: 60 Year
  Sex: Male

DRUGS (1)
  1. NIVOLUMAB [Suspect]
     Active Substance: NIVOLUMAB
     Indication: NON-SMALL CELL LUNG CANCER
     Dosage: 200 MILLIGRAM, Q2WK
     Route: 042
     Dates: start: 20190428

REACTIONS (10)
  - Dizziness [Unknown]
  - Hyperhidrosis [Unknown]
  - Gait disturbance [Unknown]
  - Dyspnoea [Unknown]
  - Atrial fibrillation [Unknown]
  - Skin disorder [Unknown]
  - Vomiting [Unknown]
  - Chest discomfort [Unknown]
  - Dysstasia [Unknown]
  - Asthma [Unknown]

NARRATIVE: CASE EVENT DATE: 20191104
